FAERS Safety Report 25100770 (Version 10)
Quarter: 2025Q2

REPORT INFORMATION
  Report Type: Spontaneous
  Country: US (occurrence: US)
  Receive Date: 20250320
  Receipt Date: 20250527
  Transmission Date: 20250716
  Serious: Yes (Other)
  Sender: PFIZER
  Company Number: US-PFIZER INC-202500060251

PATIENT
  Age: 62 Year
  Sex: Female
  Weight: 72.57 kg

DRUGS (6)
  1. PREMARIN [Suspect]
     Active Substance: ESTROGENS, CONJUGATED
     Indication: Incontinence
     Dosage: 0.625MG ONE TABLET DAILY BY MOUTH
     Route: 048
     Dates: start: 2016
  2. PREMARIN [Suspect]
     Active Substance: ESTROGENS, CONJUGATED
     Indication: Hormone replacement therapy
     Dosage: 0.625MG ONE TABLET DAILY BY MOUTH
     Route: 048
  3. PREMARIN [Suspect]
     Active Substance: ESTROGENS, CONJUGATED
     Indication: Menopause
  4. PREMARIN [Suspect]
     Active Substance: ESTROGENS, CONJUGATED
     Indication: Atrophic vulvovaginitis
     Dosage: 0.625 MG, APPLY A PEA SIZE DOWN THERE APPLIED AT BEDTIME
  5. PREMARIN [Suspect]
     Active Substance: ESTROGENS, CONJUGATED
     Indication: Menopause
     Dosage: 0.5 OF AN APPLICATOR FULL, VAGINALLY AT BEDTIME, EVERYDAY
     Route: 067
     Dates: start: 20200127
  6. PRILOSEC [Concomitant]
     Active Substance: OMEPRAZOLE MAGNESIUM
     Indication: Dyspepsia
     Dosage: 40MG CAPSULE ONE DAILY AM BY MOUTH
     Route: 048

REACTIONS (1)
  - Bladder repair [Unknown]

NARRATIVE: CASE EVENT DATE: 20190101
